FAERS Safety Report 7097562-5 (Version None)
Quarter: 2010Q4

REPORT INFORMATION
  Report Type: 
  Country: None (occurrence: None)
  Receive Date: 20101111
  Receipt Date: 20101104
  Transmission Date: 20110411
  Serious: Yes (Hospitalization)
  Sender: FDA-Public Use
  Company Number: FR-B.I. PHARMACEUTICALS,INC./RIDGEFIELD-2010-FF-00891FF

PATIENT
  Age: 67 Year
  Sex: Male

DRUGS (13)
  1. SIFROL [Suspect]
     Indication: RESTLESS LEGS SYNDROME
     Dosage: 0.18 MG
     Route: 048
     Dates: start: 20100101
  2. GLUCOPHAGE [Concomitant]
     Dosage: 2550 MG
  3. DILTIAZEM [Concomitant]
     Dosage: 300 MG
  4. CREON [Concomitant]
     Dosage: 150000 U
  5. CO-APROVEL [Concomitant]
     Dosage: 75 MG
  6. APROVEL [Concomitant]
     Dosage: 75 MG
  7. TAHOR [Concomitant]
     Dosage: 10 MG
  8. SEROPLEX [Concomitant]
     Dosage: 10 MG
  9. VASTAREL [Concomitant]
     Dosage: 70 MG
  10. OMACOR [Concomitant]
  11. DIFRAREL [Concomitant]
     Dosage: 100 MG
  12. TARDYFERON [Concomitant]
  13. INSULIN [Concomitant]

REACTIONS (6)
  - BALANCE DISORDER [None]
  - BLOOD PRESSURE INCREASED [None]
  - FALL [None]
  - HYPERGLYCAEMIA [None]
  - RIB FRACTURE [None]
  - VERTIGO [None]
